FAERS Safety Report 4731170-3 (Version None)
Quarter: 2005Q3

REPORT INFORMATION
  Report Type: 
  Country: None (occurrence: None)
  Receive Date: 20050802
  Receipt Date: 20050304
  Transmission Date: 20060218
  Serious: Yes (Hospitalization)
  Sender: FDA-Public Use
  Company Number: GB-BOEHRINGER INGELHEIM PHARMACEUTICALS, INC.-2005-UK-00379UK

PATIENT
  Sex: Female

DRUGS (10)
  1. VIRAMUNE SUSPENSION (00015/0215/A) [Suspect]
     Indication: BLOOD HIV RNA INCREASED
     Route: 048
     Dates: start: 20041210, end: 20041216
  2. VIRAMUNE SUSPENSION (00015/0215/A) [Suspect]
     Indication: CD4 LYMPHOCYTES DECREASED
  3. LOPINAVIR [Concomitant]
  4. AZT [Concomitant]
  5. GAVISCON [Concomitant]
     Indication: GASTROOESOPHAGEAL REFLUX DISEASE
     Dosage: 1/2 SACHET 6 TIMES DAILY
     Route: 048
     Dates: start: 20040130, end: 20050217
  6. GAVISCON [Concomitant]
     Indication: VOMITING
  7. ABDEC [Concomitant]
     Indication: FAILURE TO THRIVE
     Dosage: 0.3 ML ONCE DAILY
     Route: 048
     Dates: start: 20040210
  8. RANITIDINE [Concomitant]
     Indication: GASTROOESOPHAGEAL REFLUX DISEASE
     Dosage: 1 ML TWICE DAILY
     Route: 048
     Dates: start: 20040130, end: 20050217
  9. RANITIDINE [Concomitant]
     Indication: VOMITING
  10. SEPTRIN [Concomitant]
     Indication: INFECTION PROPHYLAXIS
     Dosage: 240 MG ONCE DAILY
     Route: 048
     Dates: start: 20040130

REACTIONS (6)
  - DIARRHOEA [None]
  - EATING DISORDER [None]
  - ORAL INTAKE REDUCED [None]
  - PYREXIA [None]
  - RASH [None]
  - RASH GENERALISED [None]
